FAERS Safety Report 7553962-8 (Version None)
Quarter: 2011Q2

REPORT INFORMATION
  Report Type: 
  Country: None (occurrence: None)
  Receive Date: 20110617
  Receipt Date: 20110607
  Transmission Date: 20111010
  Serious: Yes (Hospitalization)
  Sender: FDA-Public Use
  Company Number: FR-SANOFI-AVENTIS-2011SA036985

PATIENT
  Age: 86 Year
  Sex: Female

DRUGS (14)
  1. PLAVIX [Suspect]
     Route: 048
     Dates: start: 20101201
  2. ATORVASTATIN CALCIUM [Concomitant]
     Route: 065
  3. ESOMEPRAZOLE MAGNESIUM [Concomitant]
     Route: 065
  4. ACETAMINOPHEN [Concomitant]
     Route: 065
  5. LEVOTHYROXINE SODIUM [Concomitant]
     Route: 065
  6. STABLON [Concomitant]
     Route: 065
  7. LASIX [Concomitant]
     Route: 065
  8. ALLOPURINOL [Concomitant]
     Route: 065
  9. ACETYL SALICYLIC ACID COMPOUND TAB [Suspect]
     Route: 048
     Dates: start: 20101201
  10. MONICOR L.P. [Concomitant]
     Route: 065
  11. REPAGLINIDE [Concomitant]
     Route: 065
  12. NEBIVOLOL HCL [Concomitant]
     Route: 065
  13. POTASSIUM CHLORIDE [Concomitant]
     Route: 065
  14. TRAMADOL HCL [Concomitant]
     Route: 065

REACTIONS (1)
  - ANAEMIA [None]
